FAERS Safety Report 5159464-0 (Version None)
Quarter: 2006Q4

REPORT INFORMATION
  Report Type: 
  Country: None (occurrence: None)
  Receive Date: 20061122
  Receipt Date: 20061122
  Transmission Date: 20070319
  Serious: Yes (Hospitalization)
  Sender: FDA-Public Use
  Company Number: None

PATIENT
  Sex: Male
  Weight: 76.7033 kg

DRUGS (2)
  1. AVASTIN [Suspect]
     Indication: HEPATIC NEOPLASM
     Dosage: 385 MG 90 MINUTES IV
     Route: 042
     Dates: start: 20061010, end: 20061031
  2. OXALIPLATIN [Suspect]
     Dosage: 239 MG 120 MINUTES IV
     Route: 042
     Dates: start: 20061010, end: 20061031

REACTIONS (3)
  - AMMONIA INCREASED [None]
  - GASTROINTESTINAL HAEMORRHAGE [None]
  - OCCULT BLOOD POSITIVE [None]
